FAERS Safety Report 13411705 (Version 2)
Quarter: 2017Q4

REPORT INFORMATION
  Report Type: Spontaneous
  Country: US (occurrence: US)
  Receive Date: 20170406
  Receipt Date: 20171123
  Transmission Date: 20180320
  Serious: No
  Sender: FDA-Public Use
  Company Number: US-JNJFOC-20170303420

PATIENT
  Age: 12 Year
  Sex: Male

DRUGS (12)
  1. RISPERDAL [Suspect]
     Active Substance: RISPERIDONE
     Indication: OPPOSITIONAL DEFIANT DISORDER
     Route: 048
     Dates: start: 20040723, end: 20040811
  2. RISPERDAL [Suspect]
     Active Substance: RISPERIDONE
     Indication: ATTENTION DEFICIT/HYPERACTIVITY DISORDER
     Route: 048
     Dates: start: 20031125, end: 20031210
  3. RISPERDAL [Suspect]
     Active Substance: RISPERIDONE
     Indication: ATTENTION DEFICIT/HYPERACTIVITY DISORDER
     Route: 048
     Dates: start: 20040723, end: 20040811
  4. RISPERDAL [Suspect]
     Active Substance: RISPERIDONE
     Indication: SEXUAL DYSFUNCTION
     Dosage: VARYING DOSES OF 0.25MG, 1MG AND 2 MG
     Route: 048
     Dates: start: 20050624, end: 20051117
  5. RISPERDAL [Suspect]
     Active Substance: RISPERIDONE
     Indication: OPPOSITIONAL DEFIANT DISORDER
     Route: 048
     Dates: start: 20031125, end: 20031210
  6. RISPERDAL [Suspect]
     Active Substance: RISPERIDONE
     Indication: SEXUAL DYSFUNCTION
     Route: 048
     Dates: start: 20031125, end: 20031210
  7. RISPERDAL [Suspect]
     Active Substance: RISPERIDONE
     Indication: IMPULSE-CONTROL DISORDER
     Route: 048
     Dates: start: 20031125, end: 20031210
  8. RISPERDAL [Suspect]
     Active Substance: RISPERIDONE
     Indication: ATTENTION DEFICIT/HYPERACTIVITY DISORDER
     Dosage: VARYING DOSES OF 0.25MG, 1MG AND 2 MG
     Route: 048
     Dates: start: 20050624, end: 20051117
  9. RISPERDAL [Suspect]
     Active Substance: RISPERIDONE
     Indication: SEXUAL DYSFUNCTION
     Route: 048
     Dates: start: 20040723, end: 20040811
  10. RISPERDAL [Suspect]
     Active Substance: RISPERIDONE
     Indication: IMPULSE-CONTROL DISORDER
     Dosage: VARYING DOSES OF 0.25MG, 1MG AND 2 MG
     Route: 048
     Dates: start: 20050624, end: 20051117
  11. RISPERDAL [Suspect]
     Active Substance: RISPERIDONE
     Indication: IMPULSE-CONTROL DISORDER
     Route: 048
     Dates: start: 20040723, end: 20040811
  12. RISPERDAL [Suspect]
     Active Substance: RISPERIDONE
     Indication: OPPOSITIONAL DEFIANT DISORDER
     Dosage: VARYING DOSES OF 0.25MG, 1MG AND 2 MG
     Route: 048
     Dates: start: 20050624, end: 20051117

REACTIONS (4)
  - Gynaecomastia [Unknown]
  - Emotional disorder [Unknown]
  - Off label use [Unknown]
  - Product use in unapproved indication [Unknown]

NARRATIVE: CASE EVENT DATE: 20031125
